FAERS Safety Report 23600848 (Version 1)
Quarter: 2024Q1

REPORT INFORMATION
  Report Type: Spontaneous
  Country: CN (occurrence: CN)
  Receive Date: 20240306
  Receipt Date: 20240306
  Transmission Date: 20240410
  Serious: Yes (Other)
  Sender: FDA-Public Use
  Company Number: CN-MYLANLABS-2024M1020213

PATIENT
  Age: 66 Year
  Sex: Female
  Weight: 60 kg

DRUGS (3)
  1. CELEBREX [Suspect]
     Active Substance: CELECOXIB
     Indication: Myalgia
     Dosage: 1 DOSAGE FORM, QD
     Route: 048
     Dates: start: 20240225, end: 20240225
  2. CELEBREX [Suspect]
     Active Substance: CELECOXIB
     Indication: Arthralgia
  3. CELEBREX [Suspect]
     Active Substance: CELECOXIB
     Indication: Back pain

REACTIONS (1)
  - Drug eruption [Recovering/Resolving]

NARRATIVE: CASE EVENT DATE: 20240225
